FAERS Safety Report 9174623 (Version 2)
Quarter: 2013Q2

REPORT INFORMATION
  Report Type: Spontaneous
  Country: US (occurrence: None)
  Receive Date: 20130313
  Receipt Date: 20130417
  Transmission Date: 20140414
  Serious: Yes (Other)
  Sender: FDA-Public Use
  Company Number: JPI-P-030349

PATIENT
  Age: 43 Year
  Sex: Female

DRUGS (1)
  1. XYREM [Suspect]
     Indication: CATAPLEXY
     Dosage: (3 GM, 2 IN 1 D), ORAL
     Route: 048
     Dates: start: 20100408

REACTIONS (3)
  - Aggression [None]
  - Memory impairment [None]
  - Adverse event [None]
